FAERS Safety Report 5934306-1 (Version None)
Quarter: 2008Q4

REPORT INFORMATION
  Report Type: 
  Country: None (occurrence: None)
  Receive Date: 20081029
  Receipt Date: 20081020
  Transmission Date: 20090506
  Serious: Yes (Hospitalization)
  Sender: FDA-Public Use
  Company Number: PHHY2008GB20798

PATIENT
  Sex: Male

DRUGS (2)
  1. CLOZARIL [Suspect]
     Indication: SCHIZOPHRENIA
     Dosage: UNK
     Dates: start: 20070410
  2. CLOZARIL [Suspect]
     Dosage: 200 MG

REACTIONS (7)
  - DIZZINESS [None]
  - ELECTROCARDIOGRAM CHANGE [None]
  - GENERAL PHYSICAL CONDITION ABNORMAL [None]
  - MENTAL DISORDER [None]
  - PALPITATIONS [None]
  - PULSE PRESSURE ABNORMAL [None]
  - VITAMIN B12 DECREASED [None]
